FAERS Safety Report 4850499-1 (Version None)
Quarter: 2005Q4

REPORT INFORMATION
  Report Type: 
  Country: None (occurrence: None)
  Receive Date: 20051208
  Receipt Date: 20051208
  Transmission Date: 20060501
  Serious: Yes (Other)
  Sender: FDA-Public Use
  Company Number: None

PATIENT
  Age: 12 Year
  Sex: Female
  Weight: 34.4734 kg

DRUGS (1)
  1. STRATTERA [Suspect]
     Indication: ATTENTION DEFICIT/HYPERACTIVITY DISORDER
     Dosage: 25 MG   TWICE A DAY  PO
     Route: 048
     Dates: start: 20051021, end: 20051123

REACTIONS (4)
  - AGITATION [None]
  - EMOTIONAL DISORDER [None]
  - HOMICIDAL IDEATION [None]
  - SUICIDAL IDEATION [None]
